FAERS Safety Report 25347781 (Version 1)
Quarter: 2025Q2

REPORT INFORMATION
  Report Type: Spontaneous
  Country: US (occurrence: None)
  Receive Date: 20250522
  Receipt Date: 20250522
  Transmission Date: 20250716
  Serious: No
  Sender: INCYTE
  Company Number: US-002147023-NVSC2025US067431

PATIENT
  Age: 31 Year

DRUGS (1)
  1. JAKAFI [Suspect]
     Active Substance: RUXOLITINIB
     Indication: Mucocutaneous candidiasis
     Route: 065

REACTIONS (1)
  - Drug effective for unapproved indication [Unknown]
